FAERS Safety Report 4725521-3 (Version None)
Quarter: 2005Q3

REPORT INFORMATION
  Report Type: 
  Country: None (occurrence: None)
  Receive Date: 20050726
  Receipt Date: 20050726
  Transmission Date: 20060218
  Serious: No
  Sender: FDA-Public Use
  Company Number: None

PATIENT
  Age: 67 Year

DRUGS (1)
  1. GAMMAGARD [Suspect]
     Indication: STEM CELL TRANSPLANT
     Dosage: 355 MG Q MONTH IV
     Route: 042
     Dates: start: 20050721

REACTIONS (1)
  - PHARMACEUTICAL PRODUCT COMPLAINT [None]
